FAERS Safety Report 9853382 (Version 3)
Quarter: 2014Q1

REPORT INFORMATION
  Report Type: Spontaneous
  Country: TR (occurrence: TR)
  Receive Date: 20140129
  Receipt Date: 20140228
  Transmission Date: 20141002
  Serious: Yes (Hospitalization, Other)
  Sender: FDA-Public Use
  Company Number: TR-NOVOPROD-395781

PATIENT
  Age: 17 Year
  Sex: Male
  Weight: 50 kg

DRUGS (7)
  1. NOVOSEVEN [Suspect]
     Indication: HAEMATURIA
     Dosage: 80 MCG/KG X 12 DOSE FOR 9 DAYS
     Route: 040
     Dates: start: 20130218, end: 20130227
  2. NOVOSEVEN [Suspect]
     Indication: FACTOR VIII DEFICIENCY
  3. LOSEC                              /00661201/ [Concomitant]
     Dosage: UNK
     Route: 042
     Dates: start: 20130218, end: 20130227
  4. TALCID [Concomitant]
     Dosage: UNK
     Route: 048
     Dates: start: 20130218, end: 20130227
  5. URSOFALK [Concomitant]
     Dosage: UNK
     Route: 048
     Dates: start: 20130218, end: 20130227
  6. REDOXON                            /00008001/ [Concomitant]
     Dosage: UNK
     Route: 048
     Dates: start: 20130218, end: 20130227
  7. DUPHALAC                           /00163401/ [Concomitant]
     Dosage: UNK
     Route: 048
     Dates: start: 20130218, end: 20130227

REACTIONS (2)
  - Haematuria [Recovered/Resolved]
  - Drug ineffective [Unknown]
